FAERS Safety Report 7816836-0 (Version None)
Quarter: 2011Q4

REPORT INFORMATION
  Report Type: 
  Country: None (occurrence: None)
  Receive Date: 20111017
  Receipt Date: 20111012
  Transmission Date: 20120403
  Serious: Yes (Death)
  Sender: FDA-Public Use
  Company Number: US-ASTELLAS-2011US006690

PATIENT
  Sex: Female

DRUGS (2)
  1. MYCOPHENOLATE MOFETIL (CELLCEPT) [Concomitant]
     Indication: LIVER TRANSPLANT
     Dosage: UNK
     Route: 065
  2. PROGRAF [Suspect]
     Indication: LIVER TRANSPLANT
     Dosage: 5 MG, UID/QD
     Route: 048
     Dates: start: 20090910

REACTIONS (1)
  - DEATH [None]
